FAERS Safety Report 5934788-5 (Version None)
Quarter: 2008Q4

REPORT INFORMATION
  Report Type: 
  Country: None (occurrence: None)
  Receive Date: 20081010
  Receipt Date: 20080117
  Transmission Date: 20090506
  Serious: Yes (Hospitalization)
  Sender: FDA-Public Use
  Company Number: 2008SP001461

PATIENT
  Age: 59 Year
  Sex: Male

DRUGS (3)
  1. TEMODAR [Suspect]
     Dosage: PO
     Route: 048
  2. AMBIEN [Concomitant]
  3. RESTORIL [Concomitant]

REACTIONS (1)
  - SOMNOLENCE [None]
